FAERS Safety Report 6011434-6 (Version None)
Quarter: 2008Q4

REPORT INFORMATION
  Report Type: 
  Country: None (occurrence: None)
  Receive Date: 20081218
  Receipt Date: 20050527
  Transmission Date: 20090506
  Serious: Yes (Death, Other)
  Sender: FDA-Public Use
  Company Number: DE-ROCHE-405869

PATIENT
  Sex: Male
  Weight: 52 kg

DRUGS (2)
  1. CAPECITABINE [Suspect]
     Indication: METASTATIC GASTRIC CANCER
     Dosage: GIVEN ON DAYS 1 TO 14 EVERY 21 DAY CYCLE.
     Route: 048
     Dates: start: 20050510, end: 20050520
  2. DOCETAXEL [Suspect]
     Indication: METASTATIC GASTRIC CANCER
     Route: 042
     Dates: start: 20050510, end: 20050520

REACTIONS (2)
  - COMA [None]
  - DEATH [None]
